FAERS Safety Report 21842505 (Version 1)
Quarter: 2023Q1

REPORT INFORMATION
  Report Type: Spontaneous
  Country: US (occurrence: US)
  Receive Date: 20230110
  Receipt Date: 20230110
  Transmission Date: 20230417
  Serious: No
  Sender: FDA-Public Use
  Company Number: US-BAYER-2022P031629

PATIENT
  Age: 38 Year
  Sex: Female

DRUGS (2)
  1. MIRENA [Suspect]
     Active Substance: LEVONORGESTREL
     Indication: Contraception
     Dosage: 20?G/DAY
     Route: 015
     Dates: start: 20190529
  2. REMODULIN [Suspect]
     Active Substance: TREPROSTINIL
     Dosage: 47.8 NG/KG/MIN

REACTIONS (1)
  - Injection site pain [None]

NARRATIVE: CASE EVENT DATE: 20221219
